FAERS Safety Report 4389188-9 (Version None)
Quarter: 2004Q2

REPORT INFORMATION
  Report Type: 
  Country: None (occurrence: None)
  Receive Date: 20040628
  Receipt Date: 20040614
  Transmission Date: 20050107
  Serious: Yes (Hospitalization, Other)
  Sender: FDA-Public Use
  Company Number: 200410326BFR

PATIENT
  Age: 76 Year
  Sex: Male
  Weight: 65 kg

DRUGS (2)
  1. CIPROFLOXACIN [Suspect]
     Dosage: SEE IMAGE
     Route: 042
     Dates: start: 20040225, end: 20040227
  2. CIPROFLOXACIN [Suspect]
     Dosage: SEE IMAGE
     Route: 042
     Dates: start: 20040227, end: 20040301

REACTIONS (11)
  - AGITATION [None]
  - ANTIBIOTIC LEVEL ABOVE THERAPEUTIC [None]
  - BLOOD CREATININE INCREASED [None]
  - CONFUSIONAL STATE [None]
  - ENCEPHALOPATHY [None]
  - INCOHERENT [None]
  - INFECTION [None]
  - INSOMNIA [None]
  - MULTI-ORGAN FAILURE [None]
  - MYOCLONUS [None]
  - SOMNOLENCE [None]
